FAERS Safety Report 25789863 (Version 1)
Quarter: 2025Q3

REPORT INFORMATION
  Report Type: Spontaneous
  Country: US (occurrence: US)
  Receive Date: 20250911
  Receipt Date: 20250911
  Transmission Date: 20251020
  Serious: No
  Sender: ALKEM
  Company Number: US-ALKEM LABORATORIES LIMITED-US-ALKEM-2025-07622

PATIENT
  Age: 68 Year
  Sex: Female

DRUGS (11)
  1. TEMAZEPAM [Suspect]
     Active Substance: TEMAZEPAM
     Indication: Rapid eye movement sleep behaviour disorder
     Route: 065
  2. CLONAZEPAM [Suspect]
     Active Substance: CLONAZEPAM
     Indication: Abnormal dreams
     Route: 065
  3. CLONAZEPAM [Suspect]
     Active Substance: CLONAZEPAM
     Route: 065
  4. CLONAZEPAM [Suspect]
     Active Substance: CLONAZEPAM
     Route: 065
  5. DONEPEZIL [Suspect]
     Active Substance: DONEPEZIL
     Indication: Rapid eye movement sleep behaviour disorder
     Route: 065
  6. PRAMIPEXOLE [Suspect]
     Active Substance: PRAMIPEXOLE
     Indication: Rapid eye movement sleep behaviour disorder
     Route: 065
  7. PRAZOSIN [Suspect]
     Active Substance: PRAZOSIN
     Indication: Rapid eye movement sleep behaviour disorder
     Route: 065
  8. RAMELTEON [Suspect]
     Active Substance: RAMELTEON
     Indication: Rapid eye movement sleep behaviour disorder
     Route: 065
  9. MELATONIN [Concomitant]
     Active Substance: MELATONIN
     Indication: Abnormal dreams
     Route: 065
  10. MELATONIN [Concomitant]
     Active Substance: MELATONIN
     Route: 065
  11. MELATONIN [Concomitant]
     Active Substance: MELATONIN
     Route: 065

REACTIONS (1)
  - Drug ineffective [Unknown]
